FAERS Safety Report 6377739-4 (Version None)
Quarter: 2009Q3

REPORT INFORMATION
  Report Type: 
  Country: None (occurrence: None)
  Receive Date: 20090925
  Receipt Date: 20090916
  Transmission Date: 20100115
  Serious: Yes (Hospitalization, Other)
  Sender: FDA-Public Use
  Company Number: FR-ROCHE-657327

PATIENT
  Age: 49 Year
  Sex: Female

DRUGS (6)
  1. PEGASYS [Suspect]
     Indication: HEPATITIS C
     Dosage: FORM: INJECTION
     Route: 065
     Dates: start: 20090213
  2. NEORECORMON [Suspect]
     Indication: ANAEMIA
     Dosage: FORM: INJECTION
     Route: 065
     Dates: end: 20090827
  3. COPEGUS [Suspect]
     Indication: HEPATITIS C
     Dosage: DOSE REDUCED
     Route: 065
     Dates: start: 20090213
  4. COPEGUS [Suspect]
     Route: 065
     Dates: start: 20090820
  5. NOCTRAN [Concomitant]
     Indication: DEPRESSION
  6. SUBUTEX [Concomitant]

REACTIONS (3)
  - ANAEMIA [None]
  - ANTI-ERYTHROPOIETIN ANTIBODY POSITIVE [None]
  - GENERAL PHYSICAL HEALTH DETERIORATION [None]
